FAERS Safety Report 8969064 (Version 7)
Quarter: 2013Q3

REPORT INFORMATION
  Report Type: Report from Study
  Country: CA (occurrence: CA)
  Receive Date: 20121217
  Receipt Date: 20130812
  Transmission Date: 20140515
  Serious: Yes (Hospitalization, Disabling)
  Sender: FDA-Public Use
  Company Number: CA-ROCHE-1164553

PATIENT
  Age: 48 Year
  Sex: Female
  Weight: 116.5 kg

DRUGS (20)
  1. ERYTHROMYCIN [Concomitant]
     Route: 065
  2. VENLAFAXINE [Concomitant]
     Indication: ANXIETY
  3. LYRICA [Concomitant]
     Indication: PAIN MANAGEMENT
     Route: 065
  4. DOCUSATE SODIUM [Concomitant]
     Indication: CONSTIPATION
     Route: 065
  5. HYDROMORPHONE [Concomitant]
     Indication: PAIN MANAGEMENT
     Route: 065
  6. RANITIDINE [Concomitant]
     Indication: GASTROOESOPHAGEAL REFLUX DISEASE
     Route: 065
  7. ACETAMINOPHEN [Concomitant]
     Indication: PAIN MANAGEMENT
     Route: 065
  8. POLYSPORIN [Concomitant]
     Route: 065
  9. ATIVAN [Concomitant]
     Indication: ANXIETY
     Route: 065
  10. ZOFRAN [Concomitant]
     Route: 065
  11. TEMOZOLOMIDE [Concomitant]
  12. KEPPRA [Concomitant]
     Indication: CONVULSION
     Route: 065
  13. KEPPRA [Concomitant]
     Dosage: INCREASED DOSE
     Route: 065
  14. JAMP SENNA [Concomitant]
     Indication: CONSTIPATION
  15. HUMULIN [Concomitant]
     Dosage: DRUG INDICATION: INSULIN REGULAR
     Route: 065
     Dates: start: 20121203
  16. ZOPICLONE [Concomitant]
     Route: 065
     Dates: start: 20121128
  17. DILAUDID [Concomitant]
     Indication: ANALGESIC THERAPY
     Route: 065
     Dates: start: 20121219
  18. LASIX [Concomitant]
     Indication: OEDEMA
     Route: 065
     Dates: start: 20130109
  19. PLACEBO [Suspect]
     Indication: GLIOBLASTOMA
     Dosage: DATE OF MOST RECENT DOSE:09 JAN 2013
     Route: 042
     Dates: start: 20121128
  20. BEVACIZUMAB [Suspect]
     Indication: GLIOBLASTOMA
     Dosage: DATE OF MOST RECENT DOSE:09 JAN 2013, LAST DOSE TAKEN 1665 MG
     Route: 042
     Dates: start: 20121120

REACTIONS (1)
  - Hemiparesis [Not Recovered/Not Resolved]
